FAERS Safety Report 6310836-8 (Version None)
Quarter: 2009Q3

REPORT INFORMATION
  Report Type: 
  Country: None (occurrence: None)
  Receive Date: 20090812
  Receipt Date: 20090803
  Transmission Date: 20100115
  Serious: Yes (Death)
  Sender: FDA-Public Use
  Company Number: 2008-187454-NL

PATIENT
  Age: 21 Year
  Sex: Female
  Weight: 58.9676 kg

DRUGS (2)
  1. NUVARING [Suspect]
     Indication: CONTRACEPTION
     Dosage: 1 DF; GM; VAG
     Route: 067
     Dates: start: 20060725, end: 20061113
  2. PREDNISONE TAB [Concomitant]

REACTIONS (4)
  - HEART TRANSPLANT [None]
  - HYPERTENSION [None]
  - LEUKOPENIA [None]
  - MYOCARDIAL INFARCTION [None]
